FAERS Safety Report 8006865-9 (Version None)
Quarter: 2011Q4

REPORT INFORMATION
  Report Type: 
  Country: None (occurrence: None)
  Receive Date: 20111227
  Receipt Date: 20111216
  Transmission Date: 20120403
  Serious: Yes (Hospitalization)
  Sender: FDA-Public Use
  Company Number: US-BAYER-2011-040444

PATIENT
  Age: 24 Year
  Sex: Female
  Weight: 59 kg

DRUGS (2)
  1. YASMIN [Suspect]
     Indication: CONTRACEPTION
     Dosage: UNK
     Dates: start: 20040101, end: 20070511
  2. PREDNISONE TAB [Concomitant]
     Dosage: 30 MG TAPER TO 10MG
     Route: 048
     Dates: start: 20070504

REACTIONS (8)
  - MUSCLE SPASMS [None]
  - DEEP VEIN THROMBOSIS [None]
  - EMOTIONAL DISTRESS [None]
  - FEAR [None]
  - ANXIETY [None]
  - PAIN IN EXTREMITY [None]
  - FATIGUE [None]
  - OEDEMA PERIPHERAL [None]
